FAERS Safety Report 13520870 (Version 1)
Quarter: 2017Q2

REPORT INFORMATION
  Report Type: Spontaneous
  Country: US (occurrence: US)
  Receive Date: 20170508
  Receipt Date: 20170508
  Transmission Date: 20170830
  Serious: No
  Sender: FDA-Public Use
  Company Number: US-TEVA-716689ACC

PATIENT
  Age: 97 Year
  Sex: Female
  Weight: 52.21 kg

DRUGS (1)
  1. TGOTHER (CEPHALEXIN) [Suspect]
     Active Substance: CEPHALEXIN
     Indication: SKIN INFECTION
     Dates: start: 20160926, end: 20161006

REACTIONS (1)
  - Tremor [Recovered/Resolved]

NARRATIVE: CASE EVENT DATE: 20161006
